APPROVED DRUG PRODUCT: DUTASTERIDE AND TAMSULOSIN HYDROCHLORIDE
Active Ingredient: DUTASTERIDE; TAMSULOSIN HYDROCHLORIDE
Strength: 0.5MG;0.4MG
Dosage Form/Route: CAPSULE;ORAL
Application: A207769 | Product #001 | TE Code: AB
Applicant: ZYDUS PHARMACEUTICALS USA INC
Approved: May 24, 2018 | RLD: No | RS: Yes | Type: RX